FAERS Safety Report 4915856-3 (Version None)
Quarter: 2006Q1

REPORT INFORMATION
  Report Type: 
  Country: None (occurrence: None)
  Receive Date: 20060214
  Receipt Date: 20060205
  Transmission Date: 20060701
  Serious: Yes (Other)
  Sender: FDA-Public Use
  Company Number: 2006017640

PATIENT
  Age: 87 Year
  Sex: Female
  Weight: 70.7611 kg

DRUGS (3)
  1. LIPITOR [Suspect]
     Indication: BLOOD CHOLESTEROL INCREASED
     Dosage: 20 MG (20 MG, 1 IN 1 D), ORAL
     Route: 048
  2. FOSAMAX [Concomitant]
  3. ACIPHEX [Concomitant]

REACTIONS (3)
  - ASTHENIA [None]
  - BALANCE DISORDER [None]
  - INADEQUATE DIET [None]
